FAERS Safety Report 15918046 (Version 1)
Quarter: 2019Q1

REPORT INFORMATION
  Report Type: Spontaneous
  Country: UA (occurrence: UA)
  Receive Date: 20190205
  Receipt Date: 20190205
  Transmission Date: 20190417
  Serious: Yes (Hospitalization)
  Sender: FDA-Public Use
  Company Number: UA-TEVA-2019-UA-1008348

PATIENT
  Age: 5 Month
  Sex: Male

DRUGS (1)
  1. SUMAMED SUSPENSION 100 MG/5 ML [Suspect]
     Active Substance: AZITHROMYCIN ANHYDROUS
     Indication: BRONCHITIS
     Route: 065

REACTIONS (1)
  - Drug ineffective [Unknown]
